FAERS Safety Report 11863595 (Version 2)
Quarter: 2016Q1

REPORT INFORMATION
  Report Type: Report from Study
  Country: CA (occurrence: CA)
  Receive Date: 20151223
  Receipt Date: 20160121
  Transmission Date: 20160526
  Serious: Yes (Other)
  Sender: FDA-Public Use
  Company Number: PHHY2014CA154360

PATIENT
  Age: 40 Year
  Sex: Female

DRUGS (3)
  1. SANDOSTATIN LAR DEPOT [Suspect]
     Active Substance: OCTREOTIDE ACETATE
     Indication: ACROMEGALY
     Dosage: 20 MG, QMO (EVERY 4 WEEKS)
     Route: 030
     Dates: start: 20141022
  2. SANDOSTATIN [Suspect]
     Active Substance: OCTREOTIDE ACETATE
     Indication: ACROMEGALY
     Dosage: UNK
     Route: 058
     Dates: start: 201409, end: 201409
  3. CELEXA [Concomitant]
     Active Substance: CITALOPRAM HYDROBROMIDE
     Indication: PRODUCT USED FOR UNKNOWN INDICATION
     Route: 065

REACTIONS (20)
  - Pneumonia bacterial [Unknown]
  - Hypersomnia [Unknown]
  - Malaise [Unknown]
  - Impatience [Unknown]
  - Mood swings [Unknown]
  - Fatigue [Unknown]
  - Insomnia [Unknown]
  - Stress [Unknown]
  - Food poisoning [Unknown]
  - Mood altered [Unknown]
  - Blood pressure increased [Unknown]
  - Weight decreased [Unknown]
  - Haemorrhage [Unknown]
  - Anger [Unknown]
  - Headache [Unknown]
  - Diarrhoea [Unknown]
  - Needle issue [Unknown]
  - Menorrhagia [Unknown]
  - Dizziness [Unknown]
  - Depressed mood [Unknown]

NARRATIVE: CASE EVENT DATE: 2014
